FAERS Safety Report 9207483 (Version 1)
Quarter: 2013Q1

REPORT INFORMATION
  Report Type: Spontaneous
  Country: US (occurrence: None)
  Receive Date: 20120718
  Receipt Date: 20120718
  Transmission Date: 20140127
  Serious: Yes (Hospitalization)
  Sender: FDA-Public Use
  Company Number: WAES1106USA02396

PATIENT
  Age: 97 Year
  Sex: Female

DRUGS (1)
  1. SINEMET CR [Suspect]
     Route: 048

REACTIONS (2)
  - Abdominal pain [None]
  - Vomiting [None]
